FAERS Safety Report 25107492 (Version 1)
Quarter: 2025Q1

REPORT INFORMATION
  Report Type: Spontaneous
  Country: US (occurrence: US)
  Receive Date: 20250321
  Receipt Date: 20250321
  Transmission Date: 20250408
  Serious: Yes (Other)
  Sender: AMGEN
  Company Number: US-AMGEN-USASP2025050223

PATIENT
  Sex: Female

DRUGS (2)
  1. NPLATE [Suspect]
     Active Substance: ROMIPLOSTIM
     Indication: Thrombocytopenia
     Route: 065
     Dates: start: 20241122
  2. NPLATE [Suspect]
     Active Substance: ROMIPLOSTIM
     Indication: Off label use

REACTIONS (4)
  - Cervix cancer metastatic [Unknown]
  - Platelet count decreased [Unknown]
  - Therapeutic response decreased [Unknown]
  - Off label use [Unknown]
